FAERS Safety Report 8409478 (Version 3)
Quarter: 2012Q4

REPORT INFORMATION
  Report Type: 
  Country: NL (occurrence: NL)
  Receive Date: 20120216
  Receipt Date: 20121112
  Transmission Date: 20130627
  Serious: Yes (Other)
  Sender: FDA-Public Use
  Company Number: NL-TEVA-322807ISR

PATIENT
  Age: 70 None
  Sex: Female

DRUGS (6)
  1. DOXY DISP [Suspect]
     Indication: BRONCHITIS
     Dosage: 200 Milligram Daily;
     Route: 048
     Dates: start: 20120123, end: 20120123
  2. DOXY DISP [Suspect]
     Dosage: 100 Milligram Daily;
     Route: 048
     Dates: start: 20120124, end: 20120128
  3. COAPROVEL [Concomitant]
     Indication: HYPERTENSION
     Dosage: 150/12.5mg
     Route: 048
     Dates: start: 2009, end: 20120128
  4. ZOLOFT 50MG [Concomitant]
     Indication: DEPRESSION
     Dosage: 50 Milligram Daily;
     Route: 048
     Dates: start: 1996
  5. LIPITOR 10MG [Concomitant]
     Indication: HYPERCHOLESTEROLAEMIA
     Dosage: 10 Milligram Daily;
     Route: 048
     Dates: start: 1996
  6. OMEPRAZOLE 40 MG [Concomitant]
     Indication: OESOPHAGITIS
     Route: 048

REACTIONS (12)
  - Loss of consciousness [Recovered/Resolved]
  - Diarrhoea [Recovered/Resolved]
  - Vomiting [Recovered/Resolved]
  - Delusion [Not Recovered/Not Resolved]
  - Confusional state [Not Recovered/Not Resolved]
  - Pyrexia [Recovered/Resolved]
  - Asthenia [Unknown]
  - Dizziness [Unknown]
  - Malaise [Unknown]
  - Anxiety [Unknown]
  - Gastroenteritis [Unknown]
  - Tongue dry [Unknown]
